FAERS Safety Report 17954028 (Version 1)
Quarter: 2020Q2

REPORT INFORMATION
  Report Type: Spontaneous
  Country: US (occurrence: US)
  Receive Date: 20200629
  Receipt Date: 20200629
  Transmission Date: 20200714
  Serious: No
  Sender: FDA-Public Use
  Company Number: US-AMGEN INC.-USASP2020100922

PATIENT
  Age: 26 Year
  Sex: Female

DRUGS (1)
  1. AIMOVIG [Suspect]
     Active Substance: ERENUMAB-AOOE
     Indication: MIGRAINE
     Dosage: 140 MILLIGRAM, QMO
     Route: 065
     Dates: start: 2019

REACTIONS (5)
  - Injection site pain [Not Recovered/Not Resolved]
  - Migraine [Unknown]
  - Injection site haemorrhage [Not Recovered/Not Resolved]
  - Product supply issue [Unknown]
  - Device defective [Unknown]

NARRATIVE: CASE EVENT DATE: 20200622
